FAERS Safety Report 4629435-9 (Version None)
Quarter: 2005Q2

REPORT INFORMATION
  Report Type: 
  Country: None (occurrence: None)
  Receive Date: 20050405
  Receipt Date: 20050330
  Transmission Date: 20051028
  Serious: Yes (Hospitalization)
  Sender: FDA-Public Use
  Company Number: 2005042120

PATIENT
  Age: 70 Year
  Sex: Male

DRUGS (3)
  1. TAHOR (ATORVASTATIN) [Suspect]
     Indication: HYPERCHOLESTEROLAEMIA
     Dosage: 10 MG 1 IN 1 D, ORAL
     Route: 048
     Dates: end: 20050108
  2. SAVARINE (CHLOROQUINE, PROGUANIL HYDROCHLORIDE) [Suspect]
     Indication: ILL-DEFINED DISORDER
     Dosage: 1 IN 1 D, ORAL
     Route: 048
     Dates: start: 20041212, end: 20050102
  3. ISKEDYL (DIHYDROERGOCRISTINE MESILATE, RAUBASINE) [Suspect]
     Indication: ILL-DEFINED DISORDER
     Dosage: 1 IN 1 D, ORAL
     Route: 048

REACTIONS (4)
  - CHLAMYDIAL INFECTION [None]
  - HEPATITIS CHOLESTATIC [None]
  - LUNG DISORDER [None]
  - PANCREATITIS [None]
